FAERS Safety Report 19185746 (Version 1)
Quarter: 2021Q2

REPORT INFORMATION
  Report Type: Spontaneous
  Country: US (occurrence: US)
  Receive Date: 20210427
  Receipt Date: 20210427
  Transmission Date: 20210717
  Serious: No
  Sender: FDA-Public Use
  Company Number: US-SA-2021SA126927

PATIENT
  Sex: Female

DRUGS (4)
  1. VITAMIN B [Suspect]
     Active Substance: VITAMIN B
     Dosage: UNK
     Route: 065
  2. ALLEGRA ALLERGY [Suspect]
     Active Substance: FEXOFENADINE HYDROCHLORIDE
     Indication: SEASONAL ALLERGY
     Dosage: UNK
     Route: 065
  3. VITAMIN C [Suspect]
     Active Substance: ASCORBIC ACID
     Dosage: UNK
     Route: 065
  4. VITAMIN K+D [CHOLECALCIFEROL\MENADIONE] [Suspect]
     Active Substance: CHOLECALCIFEROL\MENADIONE
     Dosage: UNK
     Route: 065

REACTIONS (1)
  - Headache [Recovered/Resolved]
